FAERS Safety Report 16339679 (Version 2)
Quarter: 2019Q2

REPORT INFORMATION
  Report Type: Other
  Country: KR (occurrence: KR)
  Receive Date: 20190521
  Receipt Date: 20190527
  Transmission Date: 20190711
  Serious: Yes (Death, Other)
  Sender: FDA-Public Use
  Company Number: KR-DSJP-DSJ-2019-117049

PATIENT

DRUGS (1)
  1. EDOXABAN [Suspect]
     Active Substance: EDOXABAN TOSYLATE
     Indication: ATRIAL FIBRILLATION

REACTIONS (4)
  - Haemorrhage [Unknown]
  - Death [Fatal]
  - Embolism [Unknown]
  - Ischaemic stroke [Unknown]
